FAERS Safety Report 13839217 (Version 1)
Quarter: 2017Q3

REPORT INFORMATION
  Report Type: Spontaneous
  Country: US (occurrence: US)
  Receive Date: 20170806
  Receipt Date: 20170806
  Transmission Date: 20171127
  Serious: Yes (Disabling)
  Sender: FDA-Public Use
  Company Number: None

PATIENT
  Age: 58 Year
  Sex: Female
  Weight: 74.25 kg

DRUGS (10)
  1. LIVER SUPPLEMENT [Concomitant]
     Active Substance: PHENOL
  2. METHYLPREDNISOLONE. [Suspect]
     Active Substance: METHYLPREDNISOLONE
     Indication: SPINAL DISORDER
     Dosage: ?          QUANTITY:1 INJECTION(S);?
     Route: 008
  3. METHYLPREDNISOLONE. [Suspect]
     Active Substance: METHYLPREDNISOLONE
     Indication: INFLAMMATION
     Dosage: ?          QUANTITY:1 INJECTION(S);?
     Route: 008
  4. METHOTREXATE. [Concomitant]
     Active Substance: METHOTREXATE
  5. MULTI VITAMIN AND MINERALS [Concomitant]
  6. HEAR SUPPLEMENT [Concomitant]
  7. FOLIC ACID. [Concomitant]
     Active Substance: FOLIC ACID
  8. VIRICONASOL [Concomitant]
  9. BRAIN SUPPLEMENT [Concomitant]
  10. KIDNEY SUPPLEMENT [Concomitant]

REACTIONS (6)
  - Quality of life decreased [None]
  - Infection [None]
  - Multi-organ disorder [None]
  - Drug effect incomplete [None]
  - Osteomyelitis [None]
  - Immune system disorder [None]

NARRATIVE: CASE EVENT DATE: 20120221
